FAERS Safety Report 24041845 (Version 1)
Quarter: 2024Q3

REPORT INFORMATION
  Report Type: Spontaneous
  Country: US (occurrence: None)
  Receive Date: 20240701
  Receipt Date: 20240701
  Transmission Date: 20241017
  Serious: Yes (Other)
  Sender: Public
  Company Number: None

PATIENT
  Sex: 0

DRUGS (1)
  1. PHENYL-LIDO [Suspect]
     Active Substance: LIDOCAINE HYDROCHLORIDE\PHENYLEPHRINE HYDROCHLORIDE
     Indication: Cataract
     Dosage: OTHER FREQUENCY : INTRAOPERATIVE USE?
     Route: 031
     Dates: start: 20240627

REACTIONS (2)
  - Cataract subcapsular [None]
  - Disease progression [None]

NARRATIVE: CASE EVENT DATE: 20240627
